FAERS Safety Report 11383080 (Version 2)
Quarter: 2020Q1

REPORT INFORMATION
  Report Type: Spontaneous
  Country: US (occurrence: US)
  Receive Date: 20150814
  Receipt Date: 20200312
  Transmission Date: 20200409
  Serious: Yes (Death, Hospitalization, Other)
  Sender: FDA-Public Use
  Company Number: US-009507513-1508USA006112

PATIENT
  Sex: Male
  Weight: 79.37 kg

DRUGS (1)
  1. JANUVIA [Suspect]
     Active Substance: SITAGLIPTIN PHOSPHATE
     Indication: TYPE 2 DIABETES MELLITUS
     Dosage: 100 MILLIGRAM, ONCE DAILY
     Route: 048
     Dates: start: 201301, end: 201304

REACTIONS (18)
  - Pulmonary fibrosis [Unknown]
  - Constipation [Recovering/Resolving]
  - Metastases to liver [Unknown]
  - Splenic cyst [Unknown]
  - Joint range of motion decreased [Unknown]
  - Oxygen saturation decreased [Unknown]
  - Heart rate irregular [Unknown]
  - Arthralgia [Unknown]
  - Aortic aneurysm [Unknown]
  - Dizziness [Unknown]
  - Hepatic cyst [Unknown]
  - Joint swelling [Unknown]
  - Hypoaesthesia [Unknown]
  - Pancreatic carcinoma [Fatal]
  - Renal cyst [Unknown]
  - Haemangioma [Unknown]
  - Pulmonary mass [Unknown]
  - Fall [Unknown]

NARRATIVE: CASE EVENT DATE: 2013
